FAERS Safety Report 8215833-3 (Version None)
Quarter: 2012Q1

REPORT INFORMATION
  Report Type: 
  Country: None (occurrence: None)
  Receive Date: 20120316
  Receipt Date: 20120307
  Transmission Date: 20120608
  Serious: Yes (Hospitalization, Other)
  Sender: FDA-Public Use
  Company Number: US-JNJFOC-20100401313

PATIENT
  Sex: Male

DRUGS (19)
  1. ACETAMINOPHEN [Concomitant]
     Indication: HEADACHE
     Route: 048
     Dates: start: 20090801
  2. VITAMIN D [Concomitant]
     Indication: MEDICAL DIET
     Route: 048
     Dates: start: 20081215
  3. LUPRON [Concomitant]
     Indication: PROSTATE CANCER
     Route: 030
     Dates: start: 20091208
  4. ZOMETA [Concomitant]
     Indication: CANCER PAIN
     Route: 042
     Dates: start: 20090507
  5. IBUPROFEN [Suspect]
     Indication: HEADACHE
     Route: 048
     Dates: start: 20060801, end: 20100321
  6. ACETAMINOPHEN [Concomitant]
     Indication: ARTHRITIS
     Route: 048
     Dates: start: 20090801
  7. ACETAMINOPHEN [Concomitant]
     Indication: BACK PAIN
     Route: 048
     Dates: start: 20090801
  8. FISH OIL [Concomitant]
     Indication: MEDICAL DIET
     Route: 048
     Dates: start: 20090308
  9. IBUPROFEN [Suspect]
     Indication: ARTHRITIS
     Route: 048
     Dates: start: 20060801, end: 20100321
  10. IBUPROFEN [Suspect]
     Indication: PAIN
     Route: 048
     Dates: start: 20060801, end: 20100321
  11. LACTOBACILLUS NOS [Concomitant]
     Indication: MEDICAL DIET
     Route: 048
     Dates: start: 19990101
  12. FLUOXETINE [Concomitant]
     Indication: ANXIETY
     Route: 048
     Dates: start: 20100213
  13. MULTI-VITAMINS [Concomitant]
     Indication: MEDICAL DIET
     Route: 048
     Dates: start: 19990101
  14. PREDNISONE [Suspect]
     Indication: PROSTATE CANCER METASTATIC
     Route: 048
     Dates: start: 20091209
  15. GREEN TEA EXTRACT [Concomitant]
     Indication: MEDICAL DIET
     Route: 048
     Dates: start: 20091101
  16. ACETAMINOPHEN [Concomitant]
     Indication: ARTHRALGIA
     Route: 048
     Dates: start: 20090801
  17. ABIRATERONE ACETATE [Suspect]
     Route: 048
  18. ABIRATERONE ACETATE [Suspect]
     Indication: PROSTATE CANCER METASTATIC
     Route: 048
     Dates: start: 20091208, end: 20100414
  19. CALCIUM [Concomitant]
     Indication: MEDICAL DIET
     Route: 048
     Dates: start: 20081215

REACTIONS (1)
  - GASTROOESOPHAGEAL REFLUX DISEASE [None]
